FAERS Safety Report 8065346-7 (Version None)
Quarter: 2012Q1

REPORT INFORMATION
  Report Type: 
  Country: None (occurrence: None)
  Receive Date: 20120124
  Receipt Date: 20120116
  Transmission Date: 20120608
  Serious: Yes (Hospitalization)
  Sender: FDA-Public Use
  Company Number: US-BAYER-2011-091172

PATIENT
  Age: 31 Year
  Sex: Female
  Weight: 99.773 kg

DRUGS (1)
  1. YAZ [Suspect]
     Indication: CONTRACEPTION
     Dosage: UNK
     Dates: start: 20080205, end: 20090201

REACTIONS (9)
  - CHOLECYSTITIS ACUTE [None]
  - GALLBLADDER DISORDER [None]
  - PAIN [None]
  - EMOTIONAL DISTRESS [None]
  - ANXIETY [None]
  - ABDOMINAL PAIN [None]
  - DYSPEPSIA [None]
  - PROCEDURAL PAIN [None]
  - PSYCHOLOGICAL TRAUMA [None]
